FAERS Safety Report 7489948-1 (Version None)
Quarter: 2011Q2

REPORT INFORMATION
  Report Type: 
  Country: None (occurrence: None)
  Receive Date: 20110519
  Receipt Date: 20110509
  Transmission Date: 20111010
  Serious: Yes (Hospitalization)
  Sender: FDA-Public Use
  Company Number: US-BAYER-200927796NA

PATIENT
  Age: 20 Year
  Sex: Female
  Weight: 68.027 kg

DRUGS (10)
  1. YASMIN [Suspect]
     Indication: MENSTRUATION IRREGULAR
  2. ADDERALL 10 [Concomitant]
     Indication: ATTENTION DEFICIT/HYPERACTIVITY DISORDER
     Dosage: UNK
     Dates: start: 20071201, end: 20080801
  3. IBUPROFENO [Concomitant]
  4. DIFLUCAN [Concomitant]
     Dosage: 150 MG, UNK
     Dates: start: 20060717
  5. YASMIN [Suspect]
     Indication: CONTRACEPTION
     Dosage: UNK
     Dates: start: 20060116, end: 20080726
  6. AZITHROMYCIN [Concomitant]
     Dosage: UNK
     Dates: start: 20070101
  7. MOBIC [Concomitant]
     Dosage: UNK
     Dates: start: 20060101, end: 20080101
  8. FLUCONAZOLE [Concomitant]
     Dosage: UNK
     Dates: start: 20060101
  9. ADVIL LIQUI-GELS [Concomitant]
  10. PARAGARD T 380A [Concomitant]

REACTIONS (8)
  - THROMBOCYTOPENIA [None]
  - THROMBOPHLEBITIS SUPERFICIAL [None]
  - PAIN IN EXTREMITY [None]
  - DEEP VEIN THROMBOSIS [None]
  - PULMONARY EMBOLISM [None]
  - INJURY [None]
  - PAIN [None]
  - JOINT SWELLING [None]
